FAERS Safety Report 24113458 (Version 2)
Quarter: 2024Q3

REPORT INFORMATION
  Report Type: Spontaneous
  Country: JP (occurrence: JP)
  Receive Date: 20240720
  Receipt Date: 20240725
  Transmission Date: 20241016
  Serious: Yes (Hospitalization)
  Sender: NOVARTIS
  Company Number: JP-002147023-NVSJ2024JP008719

PATIENT
  Age: 75 Year
  Sex: Female
  Weight: 48 kg

DRUGS (7)
  1. TAFINLAR [Suspect]
     Active Substance: DABRAFENIB MESYLATE
     Indication: Thyroid cancer
     Dosage: 300 MG
     Route: 048
     Dates: start: 20240710, end: 20240713
  2. MEKINIST [Suspect]
     Active Substance: TRAMETINIB DIMETHYL SULFOXIDE
     Indication: Thyroid cancer
     Dosage: 2 MG
     Route: 048
     Dates: start: 20240710, end: 20240713
  3. NICORANDIL [Concomitant]
     Active Substance: NICORANDIL
     Indication: Thrombosis prophylaxis
     Dosage: UNK
     Route: 065
  4. HEPARIN SODIUM [Concomitant]
     Active Substance: HEPARIN SODIUM
     Indication: Thrombosis prophylaxis
     Dosage: UNK
     Route: 065
     Dates: end: 20240716
  5. HEPARIN SODIUM [Concomitant]
     Active Substance: HEPARIN SODIUM
     Indication: Myocardial infarction
  6. ASPIRIN [Concomitant]
     Active Substance: ASPIRIN
     Indication: Thrombosis prophylaxis
     Dosage: UNK
     Route: 048
  7. ASPIRIN [Concomitant]
     Active Substance: ASPIRIN
     Indication: Myocardial infarction

REACTIONS (2)
  - Myocardial infarction [Recovering/Resolving]
  - Nausea [Not Recovered/Not Resolved]

NARRATIVE: CASE EVENT DATE: 20240713
